FAERS Safety Report 10430312 (Version 1)
Quarter: 2014Q3

REPORT INFORMATION
  Report Type: Spontaneous
  Country: US (occurrence: None)
  Receive Date: 20140903
  Receipt Date: 20140903
  Transmission Date: 20150326
  Serious: No
  Sender: FDA-Public Use
  Company Number: None

PATIENT
  Age: 56 Year
  Sex: Male
  Weight: 90.72 kg

DRUGS (2)
  1. PENNSAID [Suspect]
     Active Substance: DICLOFENAC SODIUM
     Indication: MUSCULAR WEAKNESS
     Dosage: APPLY TWICE DAILY  TWICE DAILY  KNEE
     Dates: start: 20140531, end: 20140809
  2. PENNSAID [Suspect]
     Active Substance: DICLOFENAC SODIUM
     Indication: ARTHRALGIA
     Dosage: APPLY TWICE DAILY  TWICE DAILY  KNEE
     Dates: start: 20140531, end: 20140809

REACTIONS (5)
  - Application site rash [None]
  - Application site pruritus [None]
  - Application site exfoliation [None]
  - Application site erythema [None]
  - Application site irritation [None]

NARRATIVE: CASE EVENT DATE: 20140830
